FAERS Safety Report 5473551-9 (Version None)
Quarter: 2007Q4

REPORT INFORMATION
  Report Type: 
  Country: None (occurrence: None)
  Receive Date: 20071001
  Receipt Date: 20070629
  Transmission Date: 20080405
  Serious: No
  Sender: FDA-Public Use
  Company Number: US-ASTRAZENECA-2007UW09623

PATIENT
  Age: 53 Year
  Sex: Female
  Weight: 91.6 kg

DRUGS (11)
  1. ARIMIDEX [Suspect]
     Indication: BREAST CANCER FEMALE
     Route: 048
     Dates: start: 20070101
  2. CHLORAZEPAM [Concomitant]
  3. PLAVIX [Concomitant]
  4. TOPROL-XL [Concomitant]
  5. FLAXSEED OIL [Concomitant]
  6. CHANTIX [Concomitant]
  7. CADUET [Concomitant]
  8. ASPIRIN [Concomitant]
  9. LISINOPRIL [Concomitant]
  10. CITALOPRAM HYDROBROMIDE [Concomitant]
  11. TAXANE [Concomitant]

REACTIONS (4)
  - BURNING SENSATION [None]
  - HYPOAESTHESIA [None]
  - PAIN IN EXTREMITY [None]
  - PARAESTHESIA [None]
